FAERS Safety Report 25164777 (Version 1)
Quarter: 2025Q2

REPORT INFORMATION
  Report Type: Spontaneous
  Country: US (occurrence: US)
  Receive Date: 20250406
  Receipt Date: 20250406
  Transmission Date: 20250716
  Serious: No
  Sender: CSL BEHRING
  Company Number: US-BEH-2025200468

PATIENT
  Sex: Female

DRUGS (1)
  1. HIZENTRA [Suspect]
     Active Substance: HUMAN IMMUNOGLOBULIN G
     Indication: Immunoglobulins
     Dosage: 12 G, QW (STRENGTH: 0.2 GM/ML, 20% PFS (10 GM TOTAL)
     Route: 058
     Dates: start: 202306

REACTIONS (1)
  - Conjunctivitis [Recovering/Resolving]
